FAERS Safety Report 14668386 (Version 1)
Quarter: 2018Q1

REPORT INFORMATION
  Report Type: Report from Study
  Country: None (occurrence: FI)
  Receive Date: 20180322
  Receipt Date: 20180322
  Transmission Date: 20180509
  Serious: Yes (Hospitalization, Other)
  Sender: FDA-Public Use
  Company Number: FI-BIOVITRUM-2010FI0040

PATIENT
  Age: 6 Year
  Sex: Male
  Weight: 23 kg

DRUGS (2)
  1. ADURSAL [Concomitant]
     Dates: start: 20060401
  2. ORFADIN [Suspect]
     Active Substance: NITISINONE
     Indication: TYROSINAEMIA
     Dates: start: 20060410, end: 20110817

REACTIONS (4)
  - Hepatocellular carcinoma [Recovered/Resolved]
  - Liver transplant [Recovered/Resolved]
  - Amino acid level increased [Recovered/Resolved]
  - Alpha 1 foetoprotein increased [Recovered/Resolved]

NARRATIVE: CASE EVENT DATE: 20100715
